FAERS Safety Report 11883017 (Version 3)
Quarter: 2016Q1

REPORT INFORMATION
  Report Type: Spontaneous
  Country: JP (occurrence: JP)
  Receive Date: 20151231
  Receipt Date: 20160125
  Transmission Date: 20160526
  Serious: Yes (Death, Other)
  Sender: FDA-Public Use
  Company Number: JP-MEDTRONIC-1046050

PATIENT
  Age: 85 Year
  Sex: Male
  Weight: 60 kg

DRUGS (1)
  1. GABALON [Suspect]
     Active Substance: BACLOFEN
     Indication: HYPOXIC-ISCHAEMIC ENCEPHALOPATHY
     Route: 037
     Dates: start: 20130809, end: 20151120

REACTIONS (3)
  - Cholelithiasis [Fatal]
  - Cholecystitis [Fatal]
  - Hepatic failure [Fatal]

NARRATIVE: CASE EVENT DATE: 201509
